FAERS Safety Report 19972828 (Version 8)
Quarter: 2022Q3

REPORT INFORMATION
  Report Type: Report from Study
  Country: CO (occurrence: CO)
  Receive Date: 20211020
  Receipt Date: 20220725
  Transmission Date: 20221027
  Serious: Yes (Other)
  Sender: FDA-Public Use
  Company Number: NVSC2021CO192372

PATIENT
  Sex: Female

DRUGS (2)
  1. KISQALI [Suspect]
     Active Substance: RIBOCICLIB
     Indication: Breast cancer metastatic
     Dosage: 600 MG, QD
     Route: 048
  2. KISQALI [Suspect]
     Active Substance: RIBOCICLIB
     Dosage: UNK
     Route: 048

REACTIONS (24)
  - Tooth fracture [Unknown]
  - Rectal stenosis [Unknown]
  - Glaucoma [Unknown]
  - Alopecia [Not Recovered/Not Resolved]
  - Visual impairment [Unknown]
  - Decreased immune responsiveness [Unknown]
  - Arthralgia [Unknown]
  - Nervousness [Unknown]
  - Anorectal discomfort [Unknown]
  - Pain [Unknown]
  - General physical health deterioration [Unknown]
  - Skin discolouration [Unknown]
  - Musculoskeletal pain [Unknown]
  - Gait disturbance [Unknown]
  - Depression [Unknown]
  - Hypoaesthesia [Unknown]
  - Weight decreased [Unknown]
  - Eye pruritus [Unknown]
  - Abdominal discomfort [Unknown]
  - Ocular hyperaemia [Unknown]
  - Osteoporosis [Unknown]
  - Malaise [Unknown]
  - Stomatitis [Unknown]
  - Nausea [Unknown]
